FAERS Safety Report 7740886-6 (Version None)
Quarter: 2011Q3

REPORT INFORMATION
  Report Type: 
  Country: None (occurrence: None)
  Receive Date: 20110909
  Receipt Date: 20110830
  Transmission Date: 20111222
  Serious: Yes (Other)
  Sender: FDA-Public Use
  Company Number: PHHY2011GB79504

PATIENT
  Age: 27 Year
  Sex: Male

DRUGS (1)
  1. VENLAFAXINE HYDROCHLORIDE [Suspect]

REACTIONS (14)
  - PANIC ATTACK [None]
  - NIGHTMARE [None]
  - VISUAL IMPAIRMENT [None]
  - FATIGUE [None]
  - NAUSEA [None]
  - CONFUSIONAL STATE [None]
  - NERVOUSNESS [None]
  - DEPRESSION [None]
  - SUICIDAL IDEATION [None]
  - HYPERHIDROSIS [None]
  - IRRITABLE BOWEL SYNDROME [None]
  - PARAESTHESIA [None]
  - DIZZINESS [None]
  - AKATHISIA [None]
